FAERS Safety Report 13691707 (Version 2)
Quarter: 2017Q3

REPORT INFORMATION
  Report Type: Report from Study
  Country: US (occurrence: US)
  Receive Date: 20170626
  Receipt Date: 20170725
  Transmission Date: 20171127
  Serious: Yes (Other)
  Sender: FDA-Public Use
  Company Number: US-GILEAD-2017-0272984

PATIENT
  Age: 87 Year
  Sex: Male

DRUGS (3)
  1. IDELALISIB [Suspect]
     Active Substance: IDELALISIB
     Indication: CHRONIC LYMPHOCYTIC LEUKAEMIA
     Dosage: 100 MG, BID
     Route: 048
     Dates: start: 20170419
  2. IDELALISIB [Suspect]
     Active Substance: IDELALISIB
     Indication: PERIPHERAL EMBOLISM
     Dosage: 100 MG, BID
     Route: 048
     Dates: start: 20170418
  3. IDELALISIB [Suspect]
     Active Substance: IDELALISIB
     Indication: THROMBOSIS

REACTIONS (6)
  - Thrombosis [Unknown]
  - Post procedural complication [Not Recovered/Not Resolved]
  - Off label use [Not Recovered/Not Resolved]
  - Drug dose omission [Recovered/Resolved]
  - Skin cancer [Unknown]
  - Nasopharyngitis [Not Recovered/Not Resolved]

NARRATIVE: CASE EVENT DATE: 20170613
